FAERS Safety Report 6232932-6 (Version None)
Quarter: 2009Q2

REPORT INFORMATION
  Report Type: 
  Country: None (occurrence: None)
  Receive Date: 20090612
  Receipt Date: 20090529
  Transmission Date: 20091009
  Serious: Yes (Hospitalization)
  Sender: FDA-Public Use
  Company Number: SPV1-2009-01099

PATIENT
  Sex: Male
  Weight: 56.7 kg

DRUGS (2)
  1. ADDERALL 10 [Suspect]
     Indication: ATTENTION DEFICIT/HYPERACTIVITY DISORDER
     Dosage: 20 MG, 1X/ DAY: QD, ORAL
     Route: 048
     Dates: start: 20080101, end: 20080101
  2. MULTIVITAMINS (ASCORBIC ACID, ERGOCALCIFEROL, FOLIC ACID, NICOTINAMIDE [Concomitant]

REACTIONS (5)
  - ANOREXIA [None]
  - BIPOLAR DISORDER [None]
  - MANIA [None]
  - POST-TRAUMATIC STRESS DISORDER [None]
  - PSYCHOMOTOR HYPERACTIVITY [None]
